FAERS Safety Report 23920889 (Version 1)
Quarter: 2024Q2

REPORT INFORMATION
  Report Type: Spontaneous
  Country: US (occurrence: None)
  Receive Date: 20240530
  Receipt Date: 20240530
  Transmission Date: 20240715
  Serious: Yes (Congenital Anomaly)
  Sender: FDA-Public Use
  Company Number: None

PATIENT
  Sex: Male
  Weight: 1.24 kg

DRUGS (7)
  1. NALTREXONE [Suspect]
     Active Substance: NALTREXONE
  2. DESVENLAFAXINE [Suspect]
     Active Substance: DESVENLAFAXINE
  3. METHYLPHENIDATE [Suspect]
     Active Substance: METHYLPHENIDATE
  4. NP THYROID [Concomitant]
  5. metformiin [Concomitant]
  6. L-METHYLFOLATE [Concomitant]
  7. FENOFIBRATE [Concomitant]
     Active Substance: FENOFIBRATE

REACTIONS (1)
  - Scrotal abscess [None]

NARRATIVE: CASE EVENT DATE: 20211013
